FAERS Safety Report 5532155-X (Version None)
Quarter: 2007Q4

REPORT INFORMATION
  Report Type: 
  Country: None (occurrence: None)
  Receive Date: 20071203
  Receipt Date: 20071119
  Transmission Date: 20080405
  Serious: Yes (Other)
  Sender: FDA-Public Use
  Company Number: FR-RANBAXY-2007RR-11578

PATIENT

DRUGS (2)
  1. DOXYCYCLINE BASICS 100 MG [Suspect]
     Indication: ACTINOMYCOTIC PULMONARY INFECTION
  2. PREDNISONE TAB [Concomitant]
     Indication: THROMBOCYTOPENIC PURPURA

REACTIONS (1)
  - HEPATITIS [None]
